FAERS Safety Report 8322893-8 (Version None)
Quarter: 2012Q2

REPORT INFORMATION
  Report Type: 
  Country: None (occurrence: None)
  Receive Date: 20120430
  Receipt Date: 20120420
  Transmission Date: 20120825
  Serious: Yes (Other)
  Sender: FDA-Public Use
  Company Number: CHPA2012TR009313

PATIENT
  Age: 2 Year
  Sex: Female

DRUGS (1)
  1. THERAFLU UNKNOWN [Suspect]
     Dosage: 1-2 TABLETS, ONCE
     Route: 048

REACTIONS (2)
  - ACCIDENTAL EXPOSURE [None]
  - NO ADVERSE EVENT [None]
